FAERS Safety Report 8080255-5 (Version None)
Quarter: 2012Q1

REPORT INFORMATION
  Report Type: 
  Country: None (occurrence: None)
  Receive Date: 20120130
  Receipt Date: 20120120
  Transmission Date: 20120608
  Serious: Yes (Hospitalization)
  Sender: FDA-Public Use
  Company Number: US-BAYER-201019035NA

PATIENT
  Age: 37 Year
  Sex: Female

DRUGS (5)
  1. YAZ [Suspect]
     Dosage: UNK
     Route: 048
     Dates: start: 20051201
  2. YASMIN [Suspect]
     Dosage: UNK
     Route: 048
     Dates: start: 20051201
  3. AYGESTIN [Concomitant]
     Dosage: UNK
     Dates: start: 20051205
  4. PROVERA [Concomitant]
     Dosage: UNK
     Dates: start: 20051119, end: 20051128
  5. MOTRIN [Concomitant]

REACTIONS (1)
  - PULMONARY EMBOLISM [None]
